FAERS Safety Report 11824172 (Version 6)
Quarter: 2016Q1

REPORT INFORMATION
  Report Type: Report from Study
  Country: CA (occurrence: CA)
  Receive Date: 20151210
  Receipt Date: 20160314
  Transmission Date: 20160525
  Serious: Yes (Death, Hospitalization)
  Sender: FDA-Public Use
  Company Number: CA-VALIDUS PHARMACEUTICALS LLC-CA-2015VAL000799

PATIENT

DRUGS (3)
  1. SIGNIFOR [Suspect]
     Active Substance: PASIREOTIDE
     Dosage: 0.6 MG, BID
     Route: 058
     Dates: start: 20150715
  2. METOPROLOL. [Suspect]
     Active Substance: METOPROLOL
     Indication: PRODUCT USED FOR UNKNOWN INDICATION
     Dosage: 25 MG, BID
  3. SIGNIFOR [Suspect]
     Active Substance: PASIREOTIDE
     Indication: PITUITARY-DEPENDENT CUSHING^S SYNDROME
     Dosage: 0.3 MG, BID
     Route: 058
     Dates: start: 20150618

REACTIONS (16)
  - Infection [Unknown]
  - Blood pressure systolic increased [Unknown]
  - Somnolence [Unknown]
  - Nausea [Unknown]
  - Death [Fatal]
  - Dizziness [Unknown]
  - Anxiety [Unknown]
  - Impaired healing [Unknown]
  - Fatigue [Unknown]
  - Septic shock [Unknown]
  - Urinary tract infection [Unknown]
  - Heart rate increased [Unknown]
  - Injury [Unknown]
  - Blood glucose increased [Unknown]
  - Memory impairment [Unknown]
  - Gait disturbance [Unknown]

NARRATIVE: CASE EVENT DATE: 20160213
